FAERS Safety Report 23655248 (Version 4)
Quarter: 2024Q2

REPORT INFORMATION
  Report Type: Spontaneous
  Country: BR (occurrence: BR)
  Receive Date: 20240320
  Receipt Date: 20240403
  Transmission Date: 20240716
  Serious: Yes (Death, Hospitalization, Disabling, Other)
  Sender: FDA-Public Use
  Company Number: BR-009507513-2403BRA005109

PATIENT
  Age: 76 Year
  Sex: Male

DRUGS (3)
  1. PEMBROLIZUMAB [Suspect]
     Active Substance: PEMBROLIZUMAB
     Indication: Non-small cell lung cancer metastatic
     Dosage: UNK
     Route: 042
     Dates: start: 20231215
  2. PEMBROLIZUMAB [Suspect]
     Active Substance: PEMBROLIZUMAB
     Dosage: UNK
     Route: 042
     Dates: start: 20240222
  3. CARBOPLATIN [Suspect]
     Active Substance: CARBOPLATIN
     Indication: Non-small cell lung cancer metastatic
     Dosage: UNK
     Dates: start: 20231215

REACTIONS (28)
  - Shock [Fatal]
  - Pneumonia [Fatal]
  - Choking [Unknown]
  - Choking [Unknown]
  - Hepatotoxicity [Recovered/Resolved]
  - Gait inability [Unknown]
  - Urinary retention [Unknown]
  - Rectal haemorrhage [Unknown]
  - Dysphagia [Recovered/Resolved]
  - Hospitalisation [Unknown]
  - Pneumonia [Recovered/Resolved]
  - Myalgia [Recovered/Resolved]
  - Muscular weakness [Unknown]
  - Fall [Unknown]
  - General physical health deterioration [Unknown]
  - Oral candidiasis [Unknown]
  - Dysphonia [Unknown]
  - Aphonia [Unknown]
  - Oxygen saturation decreased [Unknown]
  - Blood pressure fluctuation [Unknown]
  - Therapy non-responder [Unknown]
  - Myalgia [Unknown]
  - Decreased appetite [Unknown]
  - Constipation [Unknown]
  - Arthralgia [Unknown]
  - Cognitive disorder [Unknown]
  - Inflammation [Unknown]
  - Asthenia [Unknown]

NARRATIVE: CASE EVENT DATE: 20231230
